FAERS Safety Report 15989784 (Version 1)
Quarter: 2019Q1

REPORT INFORMATION
  Report Type: Spontaneous
  Country: NL (occurrence: NL)
  Receive Date: 20190221
  Receipt Date: 20190221
  Transmission Date: 20190418
  Serious: Yes (Death, Other)
  Sender: FDA-Public Use
  Company Number: NL-TEVA-2019-NL-1014445

PATIENT
  Age: 8 Decade
  Sex: Male

DRUGS (3)
  1. EVEROLIMUS. [Suspect]
     Active Substance: EVEROLIMUS
     Indication: PANCREATIC NEUROENDOCRINE TUMOUR
     Dosage: 10 MILLIGRAM DAILY;
     Route: 065
  2. CAPECITABINE. [Suspect]
     Active Substance: CAPECITABINE
     Indication: PANCREATIC NEUROENDOCRINE TUMOUR
     Dosage: 1200 MG/M2 DAILY; ADMINISTERED ON 1-14 EVERY 4 WEEKS
     Route: 065
  3. TEMOZOLOMIDE. [Suspect]
     Active Substance: TEMOZOLOMIDE
     Indication: PANCREATIC NEUROENDOCRINE TUMOUR
     Dosage: 150 MG/M2 DAILY; ADMINISTERED ON 10-14 EVERY 4 WEEKS
     Route: 065

REACTIONS (7)
  - Paradoxical drug reaction [Fatal]
  - Neurological decompensation [Fatal]
  - Metastases to meninges [Fatal]
  - Cerebellar ataxia [Unknown]
  - Urinary incontinence [Unknown]
  - Paraparesis [Unknown]
  - Anal incontinence [Unknown]
